FAERS Safety Report 4765131-5 (Version None)
Quarter: 2005Q3

REPORT INFORMATION
  Report Type: 
  Country: None (occurrence: None)
  Receive Date: 20050906
  Receipt Date: 20050831
  Transmission Date: 20060218
  Serious: Yes (Death, Other)
  Sender: FDA-Public Use
  Company Number: USA0507103070

PATIENT
  Sex: Female

DRUGS (2)
  1. ZYPREXA [Suspect]
     Dosage: UNK
     Route: 065
  2. COUMADIN [Concomitant]

REACTIONS (1)
  - HIP FRACTURE [None]
